FAERS Safety Report 4938677-4 (Version None)
Quarter: 2006Q1

REPORT INFORMATION
  Report Type: 
  Country: None (occurrence: None)
  Receive Date: 20060309
  Receipt Date: 20050609
  Transmission Date: 20060701
  Serious: Yes (Other)
  Sender: FDA-Public Use
  Company Number: PHBS2005US08166

PATIENT
  Age: 70 Year
  Sex: Male

DRUGS (4)
  1. LESCOL XL [Suspect]
     Indication: HYPERCHOLESTEROLAEMIA
     Dosage: 80 MG, QD
     Route: 048
  2. CRESTOR [Suspect]
     Indication: HYPERCHOLESTEROLAEMIA
     Dosage: 10 MG, QD
     Route: 048
  3. INFLUENZA VACCINE [Concomitant]
  4. ZETIA [Suspect]

REACTIONS (6)
  - ARTHRALGIA [None]
  - DIFFICULTY IN WALKING [None]
  - JOINT RANGE OF MOTION DECREASED [None]
  - MONOPLEGIA [None]
  - PAIN IN EXTREMITY [None]
  - SHOULDER PAIN [None]
